FAERS Safety Report 5104568-1 (Version None)
Quarter: 2006Q3

REPORT INFORMATION
  Report Type: 
  Country: None (occurrence: None)
  Receive Date: 20060908
  Receipt Date: 20060908
  Transmission Date: 20061208
  Serious: No
  Sender: FDA-Public Use
  Company Number: None

PATIENT
  Age: 52 Year
  Sex: Female
  Weight: 67.1324 kg

DRUGS (1)
  1. SUDAFED 24 HOUR [Suspect]

REACTIONS (3)
  - AGITATION [None]
  - INSOMNIA [None]
  - NERVOUSNESS [None]
